FAERS Safety Report 11825705 (Version 7)
Quarter: 2017Q2

REPORT INFORMATION
  Report Type: Spontaneous
  Country: US (occurrence: US)
  Receive Date: 20151211
  Receipt Date: 20170523
  Transmission Date: 20170829
  Serious: No
  Sender: FDA-Public Use
  Company Number: US-JNJFOC-20150716596

PATIENT
  Sex: Male

DRUGS (13)
  1. IMBRUVICA [Suspect]
     Active Substance: IBRUTINIB
     Indication: WALDENSTROM^S MACROGLOBULINAEMIA
     Route: 048
     Dates: start: 20150323
  2. ASA [Suspect]
     Active Substance: ASPIRIN
     Indication: PRODUCT USED FOR UNKNOWN INDICATION
     Route: 065
  3. POTASSIUM [Concomitant]
     Active Substance: POTASSIUM
  4. VITAMIN D [Concomitant]
     Active Substance: CHOLECALCIFEROL
  5. LASIX [Concomitant]
     Active Substance: FUROSEMIDE
  6. CYANOCOBALAMIN. [Concomitant]
     Active Substance: CYANOCOBALAMIN
  7. ASCORBIC ACID. [Concomitant]
     Active Substance: ASCORBIC ACID
  8. TOCOPHEROL [Concomitant]
     Active Substance: TOCOPHEROL
  9. CARISOPRODOL. [Concomitant]
     Active Substance: CARISOPRODOL
  10. FISH OIL [Concomitant]
     Active Substance: FISH OIL
  11. IMBRUVICA [Suspect]
     Active Substance: IBRUTINIB
     Indication: MANTLE CELL LYMPHOMA
     Route: 048
     Dates: start: 20150323
  12. LISINOPRIL. [Concomitant]
     Active Substance: LISINOPRIL
  13. OMEPRAZOLE. [Concomitant]
     Active Substance: OMEPRAZOLE

REACTIONS (18)
  - Neck pain [Unknown]
  - Musculoskeletal pain [Unknown]
  - Abdominal pain upper [Unknown]
  - Visual impairment [Unknown]
  - Photosensitivity reaction [Unknown]
  - Dizziness [Unknown]
  - Fatigue [Unknown]
  - Myalgia [Unknown]
  - Constipation [Unknown]
  - Temperature intolerance [Recovered/Resolved]
  - Purpura senile [Unknown]
  - Diarrhoea [Unknown]
  - Oropharyngeal discomfort [Unknown]
  - Weight increased [Unknown]
  - Hypoaesthesia [Recovered/Resolved with Sequelae]
  - Restless legs syndrome [Unknown]
  - Peripheral swelling [Unknown]
  - Pain in extremity [Unknown]

NARRATIVE: CASE EVENT DATE: 2015
